FAERS Safety Report 7130540-6 (Version None)
Quarter: 2010Q4

REPORT INFORMATION
  Report Type: 
  Country: None (occurrence: None)
  Receive Date: 20101201
  Receipt Date: 20101122
  Transmission Date: 20110411
  Serious: Yes (Hospitalization)
  Sender: FDA-Public Use
  Company Number: FR-PFIZER INC-2010160469

PATIENT
  Age: 40 Year
  Sex: Female

DRUGS (9)
  1. PANTOPRAZOLE [Suspect]
  2. KEPPRA [Suspect]
     Dosage: UNK
     Route: 042
     Dates: start: 20100923, end: 20101104
  3. TAVANIC [Suspect]
     Indication: LUNG INFECTION
     Dosage: 2 DOSAGE FORMS
     Route: 048
     Dates: start: 20101016, end: 20101031
  4. EUPRESSYL [Suspect]
     Dosage: UNK
     Route: 042
     Dates: start: 20101024, end: 20101101
  5. CLONIDINE HCL [Suspect]
     Dosage: UNK
     Route: 042
     Dates: start: 20101015, end: 20101030
  6. CALCIPARINE [Suspect]
     Dosage: UNK
     Dates: start: 20100929, end: 20101116
  7. BRISTOPEN [Suspect]
     Indication: LUNG INFECTION
     Dosage: UNK
     Route: 042
     Dates: start: 20101016, end: 20101031
  8. LOXEN [Suspect]
     Dosage: UNK
     Route: 042
     Dates: start: 20101015, end: 20101105
  9. CLINOMEL [Suspect]
     Indication: PARENTERAL NUTRITION
     Dosage: UNK
     Route: 042
     Dates: start: 20101018, end: 20101031

REACTIONS (3)
  - ALLERGY TO CHEMICALS [None]
  - CYTOLYTIC HEPATITIS [None]
  - DRUG RASH WITH EOSINOPHILIA AND SYSTEMIC SYMPTOMS [None]
